FAERS Safety Report 7860059-6 (Version None)
Quarter: 2011Q4

REPORT INFORMATION
  Report Type: 
  Country: None (occurrence: None)
  Receive Date: 20111025
  Receipt Date: 20111013
  Transmission Date: 20120403
  Serious: Yes (Other)
  Sender: FDA-Public Use
  Company Number: 2011SP048690

PATIENT
  Sex: Female

DRUGS (1)
  1. TEMODAL [Suspect]
     Indication: PRODUCT USED FOR UNKNOWN INDICATION
     Dosage: ; UKN ; PO
     Route: 048

REACTIONS (1)
  - PREMATURE MENOPAUSE [None]
